FAERS Safety Report 8277880-5 (Version None)
Quarter: 2012Q2

REPORT INFORMATION
  Report Type: 
  Country: None (occurrence: None)
  Receive Date: 20120412
  Receipt Date: 20120403
  Transmission Date: 20120825
  Serious: Yes (Hospitalization)
  Sender: FDA-Public Use
  Company Number: PHHY2012BR007513

PATIENT
  Sex: Male

DRUGS (9)
  1. EXFORGE [Suspect]
     Indication: HYPERTENSION
     Route: 048
  2. COUMADIN [Concomitant]
  3. ADALAT [Concomitant]
  4. LIPITOR [Concomitant]
  5. JANUVIA [Concomitant]
  6. NEOLINE [Concomitant]
  7. PHENYTOIN [Concomitant]
  8. SEROQUEL [Concomitant]
  9. CLONAZEPAM [Concomitant]

REACTIONS (1)
  - GASTRIC POLYPS [None]
